FAERS Safety Report 4486091-0 (Version None)
Quarter: 2004Q4

REPORT INFORMATION
  Report Type: 
  Country: None (occurrence: None)
  Receive Date: 20041021
  Receipt Date: 20041008
  Transmission Date: 20050328
  Serious: Yes (Hospitalization, Other)
  Sender: FDA-Public Use
  Company Number: 2004008075

PATIENT
  Sex: Male

DRUGS (1)
  1. ZYRTEC [Suspect]
     Indication: RHINITIS ALLERGIC
     Dosage: 10 MG (10 MG, 1 IN 1 D), ORAL
     Route: 048
     Dates: start: 19990101, end: 20030301

REACTIONS (10)
  - ANOREXIA [None]
  - ASTHENIA [None]
  - AUTOANTIBODY POSITIVE [None]
  - CHOLESTASIS [None]
  - CHROMATURIA [None]
  - FATIGUE [None]
  - FEELING ABNORMAL [None]
  - GILBERT'S SYNDROME [None]
  - HEPATITIS [None]
  - NAUSEA [None]
